FAERS Safety Report 8125201-0 (Version None)
Quarter: 2012Q1

REPORT INFORMATION
  Report Type: 
  Country: None (occurrence: None)
  Receive Date: 20120209
  Receipt Date: 20120208
  Transmission Date: 20120608
  Serious: Yes (Other)
  Sender: FDA-Public Use
  Company Number: DE-BAYER-2012-012523

PATIENT

DRUGS (1)
  1. AVELOX [Suspect]

REACTIONS (1)
  - DIPLOPIA [None]
